FAERS Safety Report 24941434 (Version 2)
Quarter: 2025Q1

REPORT INFORMATION
  Report Type: Report from Study
  Country: US (occurrence: US)
  Receive Date: 20250207
  Receipt Date: 20250213
  Transmission Date: 20250408
  Serious: Yes (Hospitalization, Other)
  Sender: ABBVIE
  Company Number: US-ABBVIE-6117214

PATIENT
  Age: 48 Year
  Sex: Female

DRUGS (1)
  1. HUMIRA [Suspect]
     Active Substance: ADALIMUMAB
     Indication: Psoriasis
     Route: 058
     Dates: start: 20230321

REACTIONS (9)
  - Hepatic steatosis [Not Recovered/Not Resolved]
  - Metabolic dysfunction-associated liver disease [Unknown]
  - Transient ischaemic attack [Recovered/Resolved]
  - Hepatic enzyme increased [Recovered/Resolved]
  - Nephrolithiasis [Unknown]
  - Hepatic fibrosis [Unknown]
  - Antiphospholipid syndrome [Not Recovered/Not Resolved]
  - Fibrosis [Not Recovered/Not Resolved]
  - Cardiolipin antibody positive [Not Recovered/Not Resolved]

NARRATIVE: CASE EVENT DATE: 20240301
